FAERS Safety Report 7824043-0 (Version None)
Quarter: 2011Q4

REPORT INFORMATION
  Report Type: 
  Country: None (occurrence: None)
  Receive Date: 20111019
  Receipt Date: 20111007
  Transmission Date: 20120403
  Serious: Yes (Hospitalization)
  Sender: FDA-Public Use
  Company Number: PHEH2011US02873

PATIENT
  Sex: Male

DRUGS (14)
  1. NIZORAL [Concomitant]
     Dosage: UNK UKN, UNK
     Route: 048
  2. QUININE SULFATE [Concomitant]
     Dosage: 325 MG, PRN
     Route: 048
  3. ASPIRIN [Concomitant]
     Dosage: 81 MG, QHS
     Route: 048
  4. CRESTOR [Concomitant]
     Dosage: 10 MG, UNK
     Route: 048
  5. MAGNESIUM COMPLEX [Concomitant]
     Dosage: 100 MG, BID
  6. DEXLANSOPRAZOLE [Concomitant]
     Dosage: 60 MG, QHS
     Route: 048
  7. EXELON [Suspect]
     Dosage: 9.5 MG,  EVERY MORNING
     Route: 062
  8. EFA PLUS [Concomitant]
     Dosage: UNK UKN, UNK
  9. MELATONIN [Concomitant]
     Dosage: 3 MG, QHS
     Route: 048
  10. KETOCONAZOLE [Concomitant]
     Dosage: UNK UKN, UNK
     Route: 048
  11. ZYRTEC [Concomitant]
     Dosage: 10 MG, QD,EVERY MORNING
     Route: 048
  12. CELEBREX [Concomitant]
     Dosage: 100 MG, QD
     Route: 048
  13. FOLIC ACID [Concomitant]
     Dosage: 1000 UG, BID
     Route: 048
  14. MUCINEX [Concomitant]
     Dosage: 600 MG, PRN
     Route: 048

REACTIONS (13)
  - VOMITING [None]
  - HYPERHIDROSIS [None]
  - VERTIGO [None]
  - ASTHENIA [None]
  - CEREBROVASCULAR ACCIDENT [None]
  - GASTROENTERITIS [None]
  - MALAISE [None]
  - DEHYDRATION [None]
  - BLOOD PRESSURE SYSTOLIC INCREASED [None]
  - VESTIBULAR NEURONITIS [None]
  - NAUSEA [None]
  - DIZZINESS [None]
  - FATIGUE [None]
